FAERS Safety Report 15158651 (Version 1)
Quarter: 2018Q3

REPORT INFORMATION
  Report Type: Spontaneous
  Country: US (occurrence: US)
  Receive Date: 20180620
  Receipt Date: 20180620
  Transmission Date: 20181010
  Serious: Yes (Other)
  Sender: FDA-Public Use
  Company Number: None

PATIENT
  Age: 63 Year
  Sex: Female
  Weight: 86.5 kg

DRUGS (1)
  1. PACLITAXEL. [Suspect]
     Active Substance: PACLITAXEL
     Indication: ENDOMETRIAL CANCER
     Dates: start: 20180615, end: 20180615

REACTIONS (3)
  - Infusion related reaction [None]
  - Back pain [None]
  - Hypersensitivity [None]

NARRATIVE: CASE EVENT DATE: 20180615
